FAERS Safety Report 8641821 (Version 2)
Quarter: 2014Q1

REPORT INFORMATION
  Report Type: Spontaneous
  Country: US (occurrence: None)
  Receive Date: 20120323
  Receipt Date: 20130305
  Transmission Date: 20141002
  Serious: Yes (Other)
  Sender: FDA-Public Use
  Company Number: 163-21880-11111107

PATIENT
  Age: 70 Year
  Sex: Male

DRUGS (4)
  1. REVLIMID [Suspect]
     Indication: PLASMA CELL MYELOMA
     Route: 048
     Dates: start: 200912
  2. HUMAN RED BLOOD CELLS [Concomitant]
  3. ASA (ACETYLSALICYLIC ACID) [Concomitant]
  4. ZYRTEC [Concomitant]

REACTIONS (4)
  - Pancytopenia [None]
  - Upper respiratory tract infection [None]
  - Bronchitis [None]
  - Acute sinusitis [None]
